FAERS Safety Report 20043663 (Version 3)
Quarter: 2022Q4

REPORT INFORMATION
  Report Type: Spontaneous
  Country: ES (occurrence: ES)
  Receive Date: 20211108
  Receipt Date: 20221116
  Transmission Date: 20230113
  Serious: Yes (Death, Hospitalization)
  Sender: FDA-Public Use
  Company Number: ES-PFM-2021-10918

PATIENT

DRUGS (13)
  1. NERLYNX [Suspect]
     Active Substance: NERATINIB
     Indication: Transitional cell carcinoma
     Dosage: 240 MG, DAILY
     Route: 065
     Dates: start: 20210824, end: 20210910
  2. NERLYNX [Suspect]
     Active Substance: NERATINIB
     Indication: Off label use
     Dosage: 160 MG, DAILY
     Route: 065
     Dates: start: 20210913, end: 20210927
  3. NERLYNX [Suspect]
     Active Substance: NERATINIB
     Dosage: 40 MG, DAILY
     Route: 065
     Dates: start: 20211006
  4. DEXAMETHASONE [Concomitant]
     Active Substance: DEXAMETHASONE
     Indication: Product used for unknown indication
     Dosage: 8 MG, QD (1/DAY)
     Route: 065
  5. Mst [Concomitant]
     Indication: Product used for unknown indication
     Dosage: 800 MG, QD (1/DAY)
     Route: 065
  6. ACETAMINOPHEN [Concomitant]
     Active Substance: ACETAMINOPHEN
     Indication: Product used for unknown indication
     Dosage: 1 G, TID (3/DAY)
     Route: 065
  7. Nolotil [Concomitant]
     Indication: Product used for unknown indication
     Dosage: TID (3/DAY)
     Route: 065
  8. DEXKETOPROFEN TROMETAMOL [Concomitant]
     Active Substance: DEXKETOPROFEN TROMETAMOL
     Indication: Product used for unknown indication
     Dosage: 25 MG, QD (1/DAY)
     Route: 065
  9. MIRTAZAPINE [Concomitant]
     Active Substance: MIRTAZAPINE
     Indication: Product used for unknown indication
     Dosage: 15 MG, QD (1/DAY)
     Route: 065
  10. DIAZEPAM [Concomitant]
     Active Substance: DIAZEPAM
     Indication: Product used for unknown indication
     Dosage: 10 MG, BID (2/DAY)
     Route: 065
  11. SERTRALINE HYDROCHLORIDE [Concomitant]
     Active Substance: SERTRALINE HYDROCHLORIDE
     Indication: Product used for unknown indication
     Dosage: 50 MG, QD (1/DAY)
     Route: 065
  12. PRIMPERAN [Concomitant]
     Active Substance: METOCLOPRAMIDE HYDROCHLORIDE
     Indication: Product used for unknown indication
     Dosage: 10 MG, TID (3/DAY)
     Route: 065
  13. OMEPRAZOLE [Concomitant]
     Active Substance: OMEPRAZOLE
     Indication: Product used for unknown indication
     Dosage: 20 MG, QD (1/DAY)
     Route: 065

REACTIONS (7)
  - Disease progression [Fatal]
  - Pain [Unknown]
  - Asthenia [Unknown]
  - Enteritis [Unknown]
  - Diarrhoea [Unknown]
  - Off label use [Unknown]
  - Product use in unapproved indication [Unknown]

NARRATIVE: CASE EVENT DATE: 20210825
